FAERS Safety Report 25950864 (Version 1)
Quarter: 2025Q4

REPORT INFORMATION
  Report Type: Spontaneous
  Country: US (occurrence: US)
  Receive Date: 20251023
  Receipt Date: 20251023
  Transmission Date: 20260118
  Serious: No
  Sender: CATALENT PHARMA SOLUTIONS
  Company Number: US_RAP_Catalent_477_821202513847_1

PATIENT
  Age: 80 Year
  Sex: Female

DRUGS (2)
  1. CETIRIZINE [Suspect]
     Active Substance: CETIRIZINE HYDROCHLORIDE
     Indication: Urticaria
     Dosage: 1 DOSAGE FORM ONCE A DAY
     Route: 065
     Dates: start: 20250818, end: 202508
  2. CETIRIZINE [Suspect]
     Active Substance: CETIRIZINE HYDROCHLORIDE
     Indication: Rash

REACTIONS (1)
  - Pruritus [Recovered/Resolved]

NARRATIVE: CASE EVENT DATE: 20250818
